FAERS Safety Report 17968865 (Version 1)
Quarter: 2020Q3

REPORT INFORMATION
  Report Type: Spontaneous
  Country: ES (occurrence: ES)
  Receive Date: 20200701
  Receipt Date: 20200701
  Transmission Date: 20201103
  Serious: Yes (Other)
  Sender: FDA-Public Use
  Company Number: ES-TEVA-2020-ES-1793222

PATIENT
  Age: 84 Year
  Sex: Female
  Weight: 50 kg

DRUGS (20)
  1. AZITROMICINA (7019A) [Suspect]
     Active Substance: AZITHROMYCIN
     Indication: COVID-19 PNEUMONIA
     Dosage: 500 MILLIGRAM DAILY; EVERY 24 HOURS
     Route: 048
     Dates: start: 20200406, end: 20200407
  2. PARACETAMOL (12A) [Concomitant]
     Active Substance: ACETAMINOPHEN
  3. SERETIDE [Concomitant]
     Active Substance: FLUTICASONE PROPIONATE\SALMETEROL XINAFOATE
  4. HIDROXICLOROQUINA (2143A) [Suspect]
     Active Substance: HYDROXYCHLOROQUINE
     Indication: COVID-19 PNEUMONIA
     Dosage: 400 MG W / 12 HOURS FOLLOWED BY 200 MG W / 12 HOURS
     Route: 048
     Dates: start: 20200406, end: 20200411
  5. DUPHALAC 10 G SOLUCION ORAL EN SOBRE [Concomitant]
  6. SINEMET PLUS RETARD 25 MG/100 MG COMPRIMIDOS DE LIBERACION PROLONGADA [Concomitant]
     Active Substance: CARBIDOPA\LEVODOPA
  7. LOPINAVIR/RITONAVIR ACCORD 200 MG/ 50 MG COMPRIMIDOS RECUBIERTOS CON P [Suspect]
     Active Substance: LOPINAVIR\RITONAVIR
     Indication: COVID-19 PNEUMONIA
     Dosage: 400 MG C/ 12H. 2 DOSAGE FORMS
     Route: 048
     Dates: start: 20200406, end: 20200407
  8. DEPRAX 100 MG COMPRIMIDOS RECUBIERTOS CON PELICULA EFG [Concomitant]
  9. ESCITALOPRAM [Concomitant]
     Active Substance: ESCITALOPRAM OXALATE
  10. ATROVENT [Concomitant]
     Active Substance: IPRATROPIUM BROMIDE
  11. OMEPRAZOL (2141A) [Concomitant]
     Active Substance: OMEPRAZOLE
  12. SINTROM [Concomitant]
     Active Substance: ACENOCOUMAROL
  13. BISOPROLOL 2,5 MG COMPRIMIDO [Concomitant]
     Active Substance: BISOPROLOL
  14. NOCTAMID 1 MG COMPRIMIDOS [Concomitant]
  15. CEFTRIAXONA (501A) [Suspect]
     Active Substance: CEFTRIAXONE
     Indication: COVID-19 PNEUMONIA
     Dosage: 2 GRAM
     Route: 042
     Dates: start: 20200406
  16. RHINOM ? RHINOMER NASAL SPRAY [Concomitant]
  17. MANIDON RETARD 120 MG COMPRIMIDOS DE LIBERACION PROLONGADA [Concomitant]
  18. HUMALOG [Concomitant]
     Active Substance: INSULIN LISPRO
  19. FUROSEMIDA (1615A) [Concomitant]
     Active Substance: FUROSEMIDE
  20. ALPRAZOLAM 1 MG COMPRIMIDO [Concomitant]

REACTIONS (2)
  - Electrocardiogram QT prolonged [Recovered/Resolved]
  - Long QT syndrome [Recovered/Resolved]

NARRATIVE: CASE EVENT DATE: 20200407
